FAERS Safety Report 8611322-2 (Version None)
Quarter: 2012Q3

REPORT INFORMATION
  Report Type: 
  Country: None (occurrence: None)
  Receive Date: 20120806
  Receipt Date: 20120726
  Transmission Date: 20120928
  Serious: Yes (Hospitalization, Other)
  Sender: FDA-Public Use
  Company Number: ACO_31097_2012

PATIENT
  Age: 85 Year
  Sex: Female
  Weight: 63.5 kg

DRUGS (4)
  1. ALL OTHER THERAPEUTIC PRODUCTS [Concomitant]
  2. AMPYRA [Suspect]
     Indication: BALANCE DISORDER
     Dosage: 10MG, LOOK 3 TIMES A WEEK, ORAL
     Route: 048
     Dates: start: 20110701, end: 20110701
  3. ANTIHYPERTENSIVES [Concomitant]
  4. ANIDEPRESSANTS [Concomitant]

REACTIONS (5)
  - CONVULSION [None]
  - CONFUSIONAL STATE [None]
  - AMNESIA [None]
  - INAPPROPRIATE SCHEDULE OF DRUG ADMINISTRATION [None]
  - URINARY TRACT INFECTION [None]
